FAERS Safety Report 4843694-9 (Version None)
Quarter: 2005Q4

REPORT INFORMATION
  Report Type: 
  Country: None (occurrence: None)
  Receive Date: 20051202
  Receipt Date: 20051128
  Transmission Date: 20060501
  Serious: Yes (Hospitalization, Other)
  Sender: FDA-Public Use
  Company Number: US-BRISTOL-MYERS SQUIBB COMPANY-13194741

PATIENT
  Age: 65 Year
  Sex: Female

DRUGS (4)
  1. CYTOXAN [Suspect]
     Indication: CHEMOTHERAPY
     Route: 040
     Dates: start: 20051109, end: 20051109
  2. DOXORUBICIN [Suspect]
     Route: 040
     Dates: start: 20051109, end: 20051109
  3. ALOXI [Suspect]
     Indication: PROPHYLAXIS OF NAUSEA AND VOMITING
     Route: 040
     Dates: start: 20051109, end: 20051109
  4. FLAGYL [Concomitant]
     Indication: CLOSTRIDIAL INFECTION

REACTIONS (3)
  - ATRIAL FIBRILLATION [None]
  - DEHYDRATION [None]
  - VOMITING [None]
